FAERS Safety Report 20422698 (Version 1)
Quarter: 2022Q1

REPORT INFORMATION
  Report Type: Spontaneous
  Country: US (occurrence: US)
  Receive Date: 20220203
  Receipt Date: 20220203
  Transmission Date: 20220423
  Serious: No
  Sender: FDA-Public Use
  Company Number: US-ELI_LILLY_AND_COMPANY-US202202000273

PATIENT
  Sex: Female

DRUGS (13)
  1. INSULIN LISPRO [Suspect]
     Active Substance: INSULIN LISPRO
     Indication: Type 1 diabetes mellitus
     Dosage: UNK UNK, UNKNOWN
     Route: 058
     Dates: start: 2016
  2. INSULIN LISPRO [Suspect]
     Active Substance: INSULIN LISPRO
     Indication: Type 1 diabetes mellitus
     Dosage: UNK UNK, UNKNOWN
     Route: 058
     Dates: start: 2016
  3. INSULIN LISPRO [Suspect]
     Active Substance: INSULIN LISPRO
     Dosage: UNK UNK, UNKNOWN
     Route: 058
     Dates: start: 2016
  4. INSULIN LISPRO [Suspect]
     Active Substance: INSULIN LISPRO
     Dosage: UNK UNK, UNKNOWN
     Route: 058
     Dates: start: 2016
  5. HUMALOG [Suspect]
     Active Substance: INSULIN LISPRO
     Indication: Type 1 diabetes mellitus
     Dosage: UNK UNK, UNKNOWN
     Route: 058
     Dates: start: 2016
  6. HUMULIN N [Suspect]
     Active Substance: INSULIN HUMAN
     Indication: Type 1 diabetes mellitus
     Dosage: 2 U, UNKNOWN
     Route: 058
     Dates: start: 2018
  7. HUMULIN N [Suspect]
     Active Substance: INSULIN HUMAN
     Indication: Type 1 diabetes mellitus
     Dosage: 2 U, UNKNOWN
     Route: 058
     Dates: start: 2018
  8. HUMULIN N [Suspect]
     Active Substance: INSULIN HUMAN
     Dosage: 2 U, UNKNOWN
     Route: 058
     Dates: start: 2018
  9. HUMULIN N [Suspect]
     Active Substance: INSULIN HUMAN
     Dosage: 2 U, UNKNOWN
     Route: 058
     Dates: start: 2018
  10. HUMULIN N [Suspect]
     Active Substance: INSULIN HUMAN
     Dosage: 1 U, UNKNOWN
     Route: 058
     Dates: start: 2018
  11. HUMULIN N [Suspect]
     Active Substance: INSULIN HUMAN
     Dosage: 1 U, UNKNOWN
     Route: 058
     Dates: start: 2018
  12. HUMULIN N [Suspect]
     Active Substance: INSULIN HUMAN
     Dosage: 1 U, UNKNOWN
     Route: 058
     Dates: start: 2018
  13. HUMULIN N [Suspect]
     Active Substance: INSULIN HUMAN
     Dosage: 1 U, UNKNOWN
     Route: 058
     Dates: start: 2018

REACTIONS (6)
  - Pancreatic disorder [Unknown]
  - Blood glucose increased [Unknown]
  - Diabetes mellitus [Unknown]
  - Injection site extravasation [Unknown]
  - Product dispensing error [Unknown]
  - Product dose omission issue [Unknown]
